FAERS Safety Report 4563788-5 (Version None)
Quarter: 2005Q1

REPORT INFORMATION
  Report Type: 
  Country: None (occurrence: None)
  Receive Date: 20050121
  Receipt Date: 20050105
  Transmission Date: 20050727
  Serious: Yes (Hospitalization, Disabling, Other)
  Sender: FDA-Public Use
  Company Number: WAES 0305USA01650

PATIENT
  Age: 58 Year
  Sex: Male
  Weight: 100.6985 kg

DRUGS (9)
  1. ZOCOR [Suspect]
     Indication: BLOOD CHOLESTEROL
     Dosage: SEE IMAGE
     Route: 048
     Dates: start: 20021010, end: 20021125
  2. ZOCOR [Suspect]
     Indication: HYPERLIPIDAEMIA
     Dosage: SEE IMAGE
     Route: 048
     Dates: start: 20021010, end: 20021125
  3. ZOCOR [Suspect]
     Indication: BLOOD CHOLESTEROL
     Dosage: SEE IMAGE
     Route: 048
     Dates: start: 20020901, end: 20021128
  4. ZOCOR [Suspect]
     Indication: HYPERLIPIDAEMIA
     Dosage: SEE IMAGE
     Route: 048
     Dates: start: 20020901, end: 20021128
  5. ACCUPRIL [Concomitant]
  6. AVANDIA [Concomitant]
  7. CALAN [Concomitant]
  8. ZYLOPRIM [Concomitant]
  9. INDOMETHACIN [Concomitant]

REACTIONS (5)
  - ARTHRALGIA [None]
  - MUSCLE SPASMS [None]
  - MUSCULAR WEAKNESS [None]
  - MYALGIA [None]
  - RHABDOMYOLYSIS [None]
